FAERS Safety Report 10672442 (Version 1)
Quarter: 2014Q4

REPORT INFORMATION
  Report Type: Report from Study
  Country: US (occurrence: US)
  Receive Date: 20141223
  Receipt Date: 20141223
  Transmission Date: 20150529
  Serious: Yes (Hospitalization, Other)
  Sender: FDA-Public Use
  Company Number: US-SA-2014SA173457

PATIENT
  Age: 64 Year
  Sex: Female

DRUGS (1)
  1. LANTUS [Suspect]
     Active Substance: INSULIN GLARGINE
     Indication: DIABETES MELLITUS
     Dosage: DOSE:60 UNIT(S)
     Route: 065
     Dates: start: 201409

REACTIONS (9)
  - Tremor [Unknown]
  - Fall [Unknown]
  - Pollakiuria [Unknown]
  - Decreased appetite [Unknown]
  - Urinary tract infection [Unknown]
  - Blood glucose decreased [Unknown]
  - Thirst [Unknown]
  - Blood glucose increased [Unknown]
  - Head injury [Unknown]

NARRATIVE: CASE EVENT DATE: 2014
